FAERS Safety Report 25389298 (Version 1)
Quarter: 2025Q2

REPORT INFORMATION
  Report Type: Spontaneous
  Country: US (occurrence: US)
  Receive Date: 20250603
  Receipt Date: 20250603
  Transmission Date: 20250716
  Serious: Yes (Hospitalization)
  Sender: BIOVITRUM
  Company Number: US-BIOVITRUM-2025-US-007727

PATIENT
  Age: 8 Year
  Sex: Female

DRUGS (2)
  1. ANAKINRA [Suspect]
     Active Substance: ANAKINRA
     Indication: Febrile infection-related epilepsy syndrome
  2. ANAKINRA [Suspect]
     Active Substance: ANAKINRA

REACTIONS (3)
  - Febrile infection-related epilepsy syndrome [Recovering/Resolving]
  - Off label use [Recovered/Resolved]
  - Condition aggravated [Recovering/Resolving]
